FAERS Safety Report 15333134 (Version 1)
Quarter: 2018Q3

REPORT INFORMATION
  Report Type: Spontaneous
  Country: US (occurrence: US)
  Receive Date: 20180830
  Receipt Date: 20180830
  Transmission Date: 20181010
  Serious: No
  Sender: FDA-Public Use
  Company Number: US-SHIRE-US201833440

PATIENT
  Age: 46 Year
  Sex: Female

DRUGS (2)
  1. VPRIV [Suspect]
     Active Substance: VELAGLUCERASE ALFA
     Indication: GAUCHER^S DISEASE
     Dosage: 12 DF, 1X/WEEK
     Route: 042
     Dates: start: 20131218
  2. EMLA [Concomitant]
     Active Substance: LIDOCAINE\PRILOCAINE
     Indication: PROPHYLAXIS

REACTIONS (2)
  - Inappropriate schedule of drug administration [Unknown]
  - Poor venous access [Unknown]

NARRATIVE: CASE EVENT DATE: 20180802
